FAERS Safety Report 7760708-7 (Version None)
Quarter: 2011Q3

REPORT INFORMATION
  Report Type: 
  Country: None (occurrence: None)
  Receive Date: 20110919
  Receipt Date: 20110916
  Transmission Date: 20111222
  Serious: Yes (Death, Hospitalization, Other)
  Sender: FDA-Public Use
  Company Number: BR-ABBOTT-11P-020-0855558-00

PATIENT
  Sex: Female
  Weight: 56 kg

DRUGS (3)
  1. HUMIRA [Suspect]
     Route: 058
  2. HUMIRA [Suspect]
     Indication: PSORIASIS
     Dosage: ON FIRST WEEK
     Route: 058
     Dates: start: 20110706, end: 20110706
  3. HUMIRA [Suspect]
     Dosage: 7 DAYS LATER
     Route: 058
     Dates: start: 20110713

REACTIONS (5)
  - CIRRHOSIS ALCOHOLIC [None]
  - HEPATITIS FULMINANT [None]
  - DECREASED APPETITE [None]
  - COMA [None]
  - PYREXIA [None]
